FAERS Safety Report 25302280 (Version 2)
Quarter: 2025Q2

REPORT INFORMATION
  Report Type: Report from Study
  Country: US (occurrence: US)
  Receive Date: 20250512
  Receipt Date: 20250515
  Transmission Date: 20250717
  Serious: Yes (Other)
  Sender: ALEXION PHARMACEUTICALS
  Company Number: US-AstraZeneca-CH-00866013A

PATIENT
  Age: 79 Year
  Weight: 87.089 kg

DRUGS (1)
  1. TEZEPELUMAB [Suspect]
     Active Substance: TEZEPELUMAB
     Indication: Asthma

REACTIONS (6)
  - Pneumonia pseudomonal [Recovering/Resolving]
  - Dyspnoea exertional [Recovering/Resolving]
  - Rhonchi [Recovering/Resolving]
  - Asthma [Unknown]
  - Dry skin [Unknown]
  - Female genital tract fistula [Unknown]
